FAERS Safety Report 23720341 (Version 1)
Quarter: 2024Q2

REPORT INFORMATION
  Report Type: Spontaneous
  Country: IT (occurrence: IT)
  Receive Date: 20240408
  Receipt Date: 20240408
  Transmission Date: 20240716
  Serious: Yes (Other)
  Sender: FDA-Public Use
  Company Number: IT-MEITHEAL-2024MPLIT00086

PATIENT
  Age: 67 Year
  Sex: Male

DRUGS (6)
  1. GEMCITABINE [Suspect]
     Active Substance: GEMCITABINE
     Indication: Bladder transitional cell carcinoma
     Dosage: 1000 MG/MQ ON DAYS 1 AND 8,
     Route: 065
     Dates: start: 202206
  2. CISPLATIN [Suspect]
     Active Substance: CISPLATIN
     Indication: Bladder transitional cell carcinoma
     Dosage: 70 MG/MQ ON DAY 1
     Route: 065
     Dates: start: 202206
  3. FILGRASTIM [Suspect]
     Active Substance: FILGRASTIM
     Indication: Neutropenia
     Dosage: 30 MU
     Route: 065
  4. SOTROVIMAB [Concomitant]
     Active Substance: SOTROVIMAB
     Indication: COVID-19
     Route: 065
  5. NIRMATRELVIR\RITONAVIR [Concomitant]
     Active Substance: NIRMATRELVIR\RITONAVIR
     Indication: COVID-19
     Dosage: 150/100 MG/MG EVERY 12 HOURS FOR 5 DAYS
     Route: 065
  6. AVELUMAB [Concomitant]
     Active Substance: AVELUMAB
     Indication: Bladder transitional cell carcinoma
     Route: 065

REACTIONS (5)
  - Organising pneumonia [Unknown]
  - Toxicity to various agents [Unknown]
  - Pneumonitis [Unknown]
  - Neutropenia [Recovered/Resolved]
  - Pulmonary toxicity [Recovered/Resolved]
